FAERS Safety Report 4691270-3 (Version None)
Quarter: 2005Q2

REPORT INFORMATION
  Report Type: 
  Country: None (occurrence: None)
  Receive Date: 20050610
  Receipt Date: 20050531
  Transmission Date: 20051028
  Serious: Yes (Other)
  Sender: FDA-Public Use
  Company Number: 2005081168

PATIENT
  Age: 77 Year
  Sex: Female
  Weight: 81.6475 kg

DRUGS (3)
  1. CELEBREX [Suspect]
     Indication: BACK PAIN
     Dosage: 200 MG (200 MG, 1 IN 1 D), ORAL
     Route: 048
  2. PREMARIN [Concomitant]
  3. ATENOLOL [Concomitant]

REACTIONS (4)
  - DRUG WITHDRAWAL SYNDROME [None]
  - FATIGUE [None]
  - HYPOKINESIA [None]
  - THYROID DISORDER [None]
